FAERS Safety Report 10489606 (Version 6)
Quarter: 2014Q4

REPORT INFORMATION
  Report Type: Spontaneous
  Country: DE (occurrence: DE)
  Receive Date: 20141002
  Receipt Date: 20141118
  Transmission Date: 20150528
  Serious: Yes (Death, Life-Threatening, Hospitalization, Other)
  Sender: FDA-Public Use
  Company Number: DE-GILEAD-2014-0116728

PATIENT
  Age: 73 Year
  Sex: Female
  Weight: 72 kg

DRUGS (13)
  1. DEKRISTOL [Concomitant]
     Active Substance: CHOLECALCIFEROL
  2. SOVALDI [Suspect]
     Active Substance: SOFOSBUVIR
     Indication: HEPATITIS C
     Dosage: 400 MG, QD
     Route: 048
     Dates: start: 20140910
  3. HERBAL NOS [Concomitant]
     Active Substance: HERBALS
  4. KAVIT [Concomitant]
  5. MAGNESIUM [Concomitant]
     Active Substance: MAGNESIUM
  6. MCP                                /00041901/ [Concomitant]
  7. FERROSANOL [Concomitant]
     Active Substance: FERROUS GLUCONATE
  8. ESOMEPRAZOLE [Concomitant]
     Active Substance: ESOMEPRAZOLE
  9. BISOPROLOL [Concomitant]
     Active Substance: BISOPROLOL
  10. DACLATASVIR [Suspect]
     Active Substance: DACLATASVIR
     Indication: HEPATITIS C
     Dosage: 60 MG, UNK
     Route: 048
     Dates: start: 20140910
  11. CANDESARTAN [Concomitant]
     Active Substance: CANDESARTAN
  12. TORASEMID [Concomitant]
     Active Substance: TORSEMIDE
  13. NOVALGIN [Concomitant]
     Active Substance: METAMIZOLE SODIUM

REACTIONS (17)
  - Melaena [Unknown]
  - Dizziness [Unknown]
  - Asthenia [Unknown]
  - Anaemia [Unknown]
  - Hypotension [Unknown]
  - Fluid retention [Unknown]
  - Fall [Unknown]
  - Dyspnoea [Unknown]
  - Thrombocytopenia [Unknown]
  - Spinal pain [Recovering/Resolving]
  - Varices oesophageal [Unknown]
  - Spinal compression fracture [Unknown]
  - General physical health deterioration [Unknown]
  - Gait disturbance [Unknown]
  - Acute kidney injury [Fatal]
  - Generalised oedema [Unknown]
  - Ascites [Unknown]

NARRATIVE: CASE EVENT DATE: 20140926
